FAERS Safety Report 8618855-3 (Version None)
Quarter: 2012Q3

REPORT INFORMATION
  Report Type: 
  Country: None (occurrence: None)
  Receive Date: 20120824
  Receipt Date: 20120814
  Transmission Date: 20120928
  Serious: Yes (Hospitalization)
  Sender: FDA-Public Use
  Company Number: US-JNJFOC-20120711303

PATIENT
  Sex: Female
  Weight: 55.4 kg

DRUGS (15)
  1. REMICADE [Suspect]
     Dosage: DOSE ALSO REPORTED AS 3 MG/KG
     Route: 042
     Dates: start: 20120717, end: 20120717
  2. TYLENOL [Concomitant]
     Indication: PREMEDICATION
     Route: 065
     Dates: start: 20120717
  3. PREDNISONE TAB [Concomitant]
     Indication: RHEUMATOID ARTHRITIS
     Route: 065
     Dates: start: 20120307
  4. PLAQUENIL [Concomitant]
     Indication: RHEUMATOID ARTHRITIS
     Route: 065
     Dates: start: 19830201
  5. PREVACID [Concomitant]
     Indication: GASTROOESOPHAGEAL REFLUX DISEASE
     Route: 065
     Dates: start: 20010601
  6. REMICADE [Suspect]
     Indication: RHEUMATOID ARTHRITIS
     Route: 042
     Dates: start: 20010718, end: 20091001
  7. AZULFIDINE [Concomitant]
     Indication: RHEUMATOID ARTHRITIS
     Route: 065
     Dates: start: 20011201
  8. TYLENOL [Concomitant]
     Indication: RHEUMATOID ARTHRITIS
     Route: 065
  9. PREDNISONE TAB [Concomitant]
     Route: 065
     Dates: start: 19920601
  10. OMEPRAZOLE [Concomitant]
     Indication: GASTRIC DISORDER
     Route: 065
  11. TYLENOL [Concomitant]
     Route: 065
     Dates: start: 20120717
  12. TYLENOL [Concomitant]
     Route: 065
  13. DIPHENHYDRAMINE HCL [Concomitant]
     Indication: PREMEDICATION
     Route: 048
     Dates: start: 20120717
  14. CALCIUM [Concomitant]
     Indication: MEDICAL DIET
     Route: 065
  15. REMICADE [Suspect]
     Dosage: WEEK-0 DOSE ALSO REPORTED AS 3 MG/KG
     Route: 042
     Dates: start: 20120703

REACTIONS (7)
  - PSORIASIS [None]
  - ECHOCARDIOGRAM ABNORMAL [None]
  - DYSPEPSIA [None]
  - ANGIOEDEMA [None]
  - HYPERSENSITIVITY [None]
  - INFUSION RELATED REACTION [None]
  - CHEST PAIN [None]
